FAERS Safety Report 9196397 (Version 1)
Quarter: 2013Q1

REPORT INFORMATION
  Report Type: Spontaneous
  Country: DE (occurrence: DE)
  Receive Date: 20130328
  Receipt Date: 20130328
  Transmission Date: 20140127
  Serious: Yes (Other)
  Sender: FDA-Public Use
  Company Number: DE-BRISTOL-MYERS SQUIBB COMPANY-18714097

PATIENT
  Age: 62 Year
  Sex: Male
  Weight: 80 kg

DRUGS (2)
  1. ERBITUX [Suspect]
     Dosage: RECENT DOSE IN MAR-2013
  2. 5-FLUOROURACIL [Concomitant]

REACTIONS (1)
  - Myocardial infarction [Unknown]
